FAERS Safety Report 12299300 (Version 3)
Quarter: 2016Q3

REPORT INFORMATION
  Report Type: Spontaneous
  Country: US (occurrence: US)
  Receive Date: 20160425
  Receipt Date: 20160802
  Transmission Date: 20161109
  Serious: Yes (Other)
  Sender: FDA-Public Use
  Company Number: US-BAYER-2016-071398

PATIENT
  Sex: Male
  Weight: 84.35 kg

DRUGS (2)
  1. DEXAMETHASONE. [Concomitant]
     Active Substance: DEXAMETHASONE
     Dosage: UNK
  2. AVELOX [Suspect]
     Active Substance: MOXIFLOXACIN HYDROCHLORIDE
     Indication: SINUSITIS
     Dosage: 400 MG, UNK
     Dates: start: 20110922, end: 20110927

REACTIONS (15)
  - Neuropathy peripheral [None]
  - Toxicity to various agents [None]
  - Nervous system disorder [None]
  - Emotional distress [None]
  - Polyneuropathy [None]
  - Disability [None]
  - Unevaluable event [None]
  - General physical health deterioration [None]
  - Pain [None]
  - Musculoskeletal injury [None]
  - Cardiovascular disorder [None]
  - Anxiety [None]
  - Depression [None]
  - Skin injury [None]
  - Mental disorder [None]
